FAERS Safety Report 24347732 (Version 1)
Quarter: 2024Q3

REPORT INFORMATION
  Report Type: Spontaneous
  Country: ID (occurrence: ID)
  Receive Date: 20240922
  Receipt Date: 20240922
  Transmission Date: 20241016
  Serious: Yes (Hospitalization)
  Sender: JOHNSON AND JOHNSON
  Company Number: ID-BAYER-2024A132364

PATIENT
  Age: 57 Year
  Sex: Female

DRUGS (3)
  1. XARELTO [Suspect]
     Active Substance: RIVAROXABAN
     Indication: Deep vein thrombosis
     Dosage: 20 MG, QD
     Route: 048
     Dates: start: 20220806
  2. TENSIVASK [Concomitant]
     Dates: start: 20220806
  3. CANDERIN [Concomitant]
     Dates: start: 20240806

REACTIONS (1)
  - Pain [Not Recovered/Not Resolved]
